FAERS Safety Report 8338785-4 (Version None)
Quarter: 2012Q2

REPORT INFORMATION
  Report Type: 
  Country: None (occurrence: None)
  Receive Date: 20120504
  Receipt Date: 20120503
  Transmission Date: 20120825
  Serious: Yes (Hospitalization)
  Sender: FDA-Public Use
  Company Number: DE-ROCHE-1057056

PATIENT
  Age: 53 Year
  Sex: Male
  Weight: 77.6 kg

DRUGS (29)
  1. DEXAMETHASONE SODIUM PHOSPHATE [Concomitant]
     Dates: start: 20110301, end: 20110320
  2. BOSWELLIA [Concomitant]
     Dates: start: 20110713
  3. TEMOZOLOMIDE [Suspect]
     Indication: GLIOBLASTOMA
     Route: 048
     Dates: start: 20110321
  4. AVASTIN [Suspect]
     Indication: GLIOBLASTOMA
     Dosage: LAST DOSE PRIOR TO SAE: 18/APR/2012
     Route: 042
  5. DEXAMETHASONE SODIUM PHOSPHATE [Concomitant]
     Dates: start: 20110225, end: 20110228
  6. DEXAMETHASONE SODIUM PHOSPHATE [Concomitant]
     Dates: start: 20110324, end: 20110326
  7. PANTOPRAZOLE [Concomitant]
     Dates: start: 20110222
  8. DEXAMETHASONE SODIUM PHOSPHATE [Concomitant]
     Dates: start: 20110225, end: 20110228
  9. DEXAMETHASONE SODIUM PHOSPHATE [Concomitant]
     Dates: start: 20110713, end: 20110715
  10. MAGNESIUM [Concomitant]
     Dates: start: 20110322, end: 20110520
  11. TEMODAL [Concomitant]
     Dates: start: 20120331, end: 20120404
  12. DEXAMETHASONE SODIUM PHOSPHATE [Concomitant]
     Dates: start: 20110214
  13. PREGABALIN [Concomitant]
     Dates: start: 20110407, end: 20110401
  14. TEMODAL [Concomitant]
     Dates: start: 20120317, end: 20120323
  15. PANTOPRAZOLE [Concomitant]
     Dates: start: 20120401
  16. DEXAMETHASONE SODIUM PHOSPHATE [Concomitant]
     Dates: start: 20110406, end: 20110412
  17. DEXAMETHASONE SODIUM PHOSPHATE [Concomitant]
     Dates: start: 20110413
  18. DEXAMETHASONE SODIUM PHOSPHATE [Concomitant]
     Dosage: 3X 40 MG
     Dates: start: 20120430
  19. DEXAMETHASONE SODIUM PHOSPHATE [Concomitant]
     Dates: start: 20110429, end: 20110511
  20. DEXAMETHASONE SODIUM PHOSPHATE [Concomitant]
     Dates: start: 20120401, end: 20120403
  21. PREGABALIN [Concomitant]
     Dates: start: 20110425, end: 20110520
  22. GRANISETRON HYDROCHLORIDE [Concomitant]
     Dates: start: 20111112, end: 20111112
  23. DEXAMETHASONE SODIUM PHOSPHATE [Concomitant]
     Dates: start: 20110327
  24. DEXAMETHASONE SODIUM PHOSPHATE [Concomitant]
     Dates: start: 20110331, end: 20110405
  25. DEXAMETHASONE SODIUM PHOSPHATE [Concomitant]
     Dates: start: 20110418
  26. DEXAMETHASONE SODIUM PHOSPHATE [Concomitant]
     Dates: start: 20110420, end: 20110424
  27. DEXAMETHASONE SODIUM PHOSPHATE [Concomitant]
     Dates: start: 20110425, end: 20110428
  28. PANTOPRAZOLE [Concomitant]
     Dates: start: 20110413
  29. GRANISETRON HYDROCHLORIDE [Concomitant]
     Dates: start: 20110723, end: 20110725

REACTIONS (2)
  - BRAIN OEDEMA [None]
  - EPILEPSY [None]
